FAERS Safety Report 5271884-2 (Version None)
Quarter: 2007Q1

REPORT INFORMATION
  Report Type: 
  Country: None (occurrence: None)
  Receive Date: 20070316
  Receipt Date: 20070228
  Transmission Date: 20070707
  Serious: Yes (Death, Congenital Anomaly)
  Sender: FDA-Public Use
  Company Number: DSA_29551_2007

PATIENT
  Sex: Female

DRUGS (3)
  1. TEMESTA [Suspect]
     Dosage: DF; UNK; TRAN-P
     Route: 064
     Dates: start: 20050125, end: 20050707
  2. FLUCTINE [Suspect]
     Dosage: DF; UNK; TRAN-P
     Route: 064
     Dates: start: 20050125, end: 20050707
  3. ZYRTEC [Suspect]
     Dosage: DF;;TRAN-P
     Route: 064
     Dates: start: 20050125, end: 20050707

REACTIONS (5)
  - DRUG EXPOSURE DURING PREGNANCY [None]
  - FOETAL DISTRESS SYNDROME [None]
  - FOETAL GROWTH RETARDATION [None]
  - INTRA-UTERINE DEATH [None]
  - OLIGOHYDRAMNIOS [None]
